FAERS Safety Report 8861596 (Version 1)
Quarter: 2012Q4

REPORT INFORMATION
  Report Type: 
  Country: US (occurrence: US)
  Receive Date: 20121025
  Receipt Date: 20121025
  Transmission Date: 20130627
  Serious: No
  Sender: FDA-Public Use
  Company Number: US-AMGEN-USASP2012017461

PATIENT
  Age: 55 Year
  Sex: Female

DRUGS (4)
  1. ENBREL [Suspect]
     Indication: PRODUCT USED FOR UNKNOWN INDICATION
     Dosage: 50 mg, qwk
     Route: 058
  2. PREDNISONE [Concomitant]
     Dosage: 1 mg, UNK
  3. IBUPROFEN [Concomitant]
     Dosage: 200 mg, UNK
  4. VITAMIN D /00107901/ [Concomitant]
     Dosage: UNK

REACTIONS (1)
  - Tinea infection [Unknown]
